FAERS Safety Report 8327816-3 (Version None)
Quarter: 2012Q2

REPORT INFORMATION
  Report Type: 
  Country: None (occurrence: None)
  Receive Date: 20120502
  Receipt Date: 20120430
  Transmission Date: 20120825
  Serious: No
  Sender: FDA-Public Use
  Company Number: US-PFIZER INC-2012106752

PATIENT
  Sex: Male

DRUGS (1)
  1. GEODON [Suspect]
     Dosage: UNK

REACTIONS (3)
  - SOMNOLENCE [None]
  - ACTIVITIES OF DAILY LIVING IMPAIRED [None]
  - DRUG INTOLERANCE [None]
